FAERS Safety Report 5219054-8 (Version None)
Quarter: 2007Q1

REPORT INFORMATION
  Report Type: 
  Country: None (occurrence: None)
  Receive Date: 20070122
  Receipt Date: 20070112
  Transmission Date: 20070707
  Serious: Yes (Hospitalization)
  Sender: FDA-Public Use
  Company Number: 2007-00030

PATIENT
  Age: 28 Year
  Sex: Female
  Weight: 65.8 kg

DRUGS (4)
  1. PROGESTEROL INJ [Suspect]
     Indication: IN VITRO FERTILISATION
     Dosage: 50 MG, QHS X 3 WEEKS, INTRAMUSCULAR
     Route: 030
     Dates: start: 20060821, end: 20060927
  2. PROGESTEROL INJ [Suspect]
     Indication: LUTEAL PHASE DEFICIENCY
     Dosage: 50 MG, QHS X 3 WEEKS, INTRAMUSCULAR
     Route: 030
     Dates: start: 20060821, end: 20060927
  3. ESTRADERM [Concomitant]
  4. STUART PRENATAL (MINERALS NOS) [Concomitant]

REACTIONS (10)
  - DRUG EXPOSURE DURING PREGNANCY [None]
  - DRUG INEFFECTIVE [None]
  - EOSINOPHILIA [None]
  - HYPERSENSITIVITY [None]
  - IMPLANT SITE REACTION [None]
  - LEUKOCYTOSIS [None]
  - NO THERAPEUTIC RESPONSE [None]
  - PNEUMONIA [None]
  - RESPIRATORY ALKALOSIS [None]
  - TACHYCARDIA [None]
